FAERS Safety Report 9344932 (Version 2)
Quarter: 2013Q3

REPORT INFORMATION
  Report Type: Spontaneous
  Country: US (occurrence: US)
  Receive Date: 20130612
  Receipt Date: 20130719
  Transmission Date: 20140515
  Serious: No
  Sender: FDA-Public Use
  Company Number: US-PFIZER INC-2013173126

PATIENT
  Age: 44 Year
  Sex: Female

DRUGS (5)
  1. ZITHROMAX [Suspect]
     Indication: LARYNGITIS
     Dosage: UNK
     Route: 048
     Dates: start: 20050527, end: 20050531
  2. ZITHROMAX [Suspect]
     Indication: TRACHEITIS
  3. WELLBUTRIN [Suspect]
     Indication: DEPRESSION
     Dosage: UNK
     Route: 048
     Dates: start: 2001, end: 200206
  4. NORTRIPTYLINE [Suspect]
     Indication: DEPRESSION
     Dosage: UNK
     Route: 048
     Dates: start: 201201, end: 201201
  5. CELEXA [Concomitant]
     Indication: DEPRESSION
     Dosage: UNK
     Dates: start: 200202, end: 200303

REACTIONS (4)
  - Drug hypersensitivity [Unknown]
  - Rash [Recovered/Resolved]
  - Hyperhidrosis [Recovered/Resolved]
  - Tremor [Recovered/Resolved]
